FAERS Safety Report 8503102-3 (Version None)
Quarter: 2012Q3

REPORT INFORMATION
  Report Type: 
  Country: None (occurrence: None)
  Receive Date: 20120711
  Receipt Date: 20120702
  Transmission Date: 20120928
  Serious: Yes (Hospitalization)
  Sender: FDA-Public Use
  Company Number: US-ELI_LILLY_AND_COMPANY-US201108002394

PATIENT
  Age: 87 Year
  Sex: Female

DRUGS (12)
  1. HYDROCODONE [Concomitant]
  2. METOPROLOL SUCCINATE [Concomitant]
  3. PRILOSEC [Concomitant]
  4. CALCIUM [Concomitant]
  5. FORTEO [Suspect]
     Indication: OSTEOPOROSIS
     Dosage: 20 UG, QD
     Route: 058
     Dates: start: 20101208
  6. CITALOPRAM HYDROBROMIDE [Concomitant]
  7. SIMVASTATIN [Concomitant]
  8. ANTIDEPRESSANTS [Concomitant]
     Indication: DEPRESSION
  9. MAGNESIUM SULFATE [Concomitant]
     Dosage: 8 DF, QD
  10. FERROUS GLUCONATE [Concomitant]
  11. VITAMIN D [Concomitant]
  12. MAGNESIUM OXIDE [Concomitant]

REACTIONS (12)
  - URINARY TRACT INFECTION [None]
  - ABNORMAL BEHAVIOUR [None]
  - DRUG DOSE OMISSION [None]
  - GAIT DISTURBANCE [None]
  - FALL [None]
  - BLADDER DISORDER [None]
  - PERIORBITAL HAEMATOMA [None]
  - BLOOD MAGNESIUM DECREASED [None]
  - CONFUSIONAL STATE [None]
  - ASTHENIA [None]
  - GENERAL PHYSICAL HEALTH DETERIORATION [None]
  - INFUSION SITE PAIN [None]
